FAERS Safety Report 22024029 (Version 1)
Quarter: 2023Q1

REPORT INFORMATION
  Report Type: Spontaneous
  Country: US (occurrence: None)
  Receive Date: 20230223
  Receipt Date: 20230223
  Transmission Date: 20230418
  Serious: No
  Sender: FDA-Public Use
  Company Number: US-ROCHE-3008093

PATIENT
  Age: 21 Year
  Sex: Female
  Weight: 57.658 kg

DRUGS (3)
  1. XOLAIR [Suspect]
     Active Substance: OMALIZUMAB
     Indication: Urticaria
     Dosage: DOSE: 150MG/ML
     Route: 058
     Dates: start: 20190730
  2. EPIPEN [Concomitant]
     Active Substance: EPINEPHRINE
     Dates: start: 20220118
  3. CETIRIZINE HCL [Concomitant]
     Active Substance: CETIRIZINE HYDROCHLORIDE
     Route: 048
     Dates: start: 20190725

REACTIONS (1)
  - Maternal exposure during pregnancy [Unknown]
